FAERS Safety Report 19557560 (Version 2)
Quarter: 2021Q3

REPORT INFORMATION
  Report Type: Report from Study
  Country: DE (occurrence: DE)
  Receive Date: 20210714
  Receipt Date: 20210805
  Transmission Date: 20211014
  Serious: Yes (Death)
  Sender: FDA-Public Use
  Company Number: DE-JNJFOC-20210722739

PATIENT
  Age: 58 Year
  Sex: Female

DRUGS (1)
  1. VENTAVIS [Suspect]
     Active Substance: ILOPROST
     Indication: PULMONARY ARTERIAL HYPERTENSION
     Dosage: 4?6X DAILY
     Route: 055
     Dates: start: 202106, end: 20210702

REACTIONS (2)
  - Death [Fatal]
  - Inappropriate schedule of product administration [Unknown]
